FAERS Safety Report 9580031 (Version 1)
Quarter: 2013Q4

REPORT INFORMATION
  Report Type: Spontaneous
  Country: US (occurrence: US)
  Receive Date: 20131002
  Receipt Date: 20131002
  Transmission Date: 20140711
  Serious: Yes (Hospitalization)
  Sender: FDA-Public Use
  Company Number: US-BAYER-2013-118010

PATIENT
  Age: 30 Year
  Sex: Female

DRUGS (10)
  1. YASMIN [Suspect]
  2. CYCLOBENZAPRINE [Concomitant]
     Dosage: 10 MG, UNK
     Route: 048
     Dates: start: 20021227
  3. HYDROCODONE W/APAP [Concomitant]
     Dosage: 10/650 MG
     Route: 048
     Dates: start: 20021227
  4. THEOPHYLLINE [Concomitant]
     Dosage: 200 MG, TID
     Route: 048
     Dates: start: 20021229
  5. ALBUTEROL [Concomitant]
     Dosage: UNK
     Dates: start: 20021229
  6. ADVAIR [Concomitant]
     Dosage: 50/100MCG TWICE DAILY
     Dates: start: 20021229
  7. SINGULAIR [Concomitant]
     Dosage: 10 MG, UNK
     Route: 048
     Dates: start: 20021229
  8. PAXIL CR [Concomitant]
     Dosage: 37.5 MG, UNK
     Route: 048
     Dates: start: 20021229
  9. ATENOLOL [Concomitant]
     Dosage: 25 MG, UNK
     Route: 048
     Dates: start: 20021229
  10. IBUPROF [Concomitant]
     Dosage: 800 MG, BID
     Route: 048
     Dates: start: 20021229

REACTIONS (2)
  - Deep vein thrombosis [None]
  - Pulmonary embolism [None]
